FAERS Safety Report 13757347 (Version 1)
Quarter: 2017Q3

REPORT INFORMATION
  Report Type: Spontaneous
  Country: US (occurrence: US)
  Receive Date: 20170716
  Receipt Date: 20170716
  Transmission Date: 20171127
  Serious: Yes (Hospitalization, Other)
  Sender: FDA-Public Use
  Company Number: US-ASTRAZENECA-2017SE72023

PATIENT
  Age: 37 Year
  Sex: Female
  Weight: 90.7 kg

DRUGS (6)
  1. NEXIUM [Suspect]
     Active Substance: ESOMEPRAZOLE MAGNESIUM
     Indication: GASTROOESOPHAGEAL REFLUX DISEASE
     Dosage: GENERIC 20 MG, TWO TIMES A DAY
     Route: 048
     Dates: start: 201705
  2. NEXIUM [Suspect]
     Active Substance: ESOMEPRAZOLE MAGNESIUM
     Indication: GASTROOESOPHAGEAL REFLUX DISEASE
     Dosage: GENERIC 20 MG, TWO TIMES A DAY
     Route: 048
     Dates: start: 201705
  3. NEXIUM 24HR [Suspect]
     Active Substance: ESOMEPRAZOLE MAGNESIUM
     Indication: GASTROOESOPHAGEAL REFLUX DISEASE
     Route: 048
     Dates: start: 201707
  4. NEXIUM [Suspect]
     Active Substance: ESOMEPRAZOLE MAGNESIUM
     Indication: GASTROOESOPHAGEAL REFLUX DISEASE
     Route: 048
  5. NEXIUM [Suspect]
     Active Substance: ESOMEPRAZOLE MAGNESIUM
     Indication: GASTROOESOPHAGEAL REFLUX DISEASE
     Route: 048
  6. NEXIUM 24HR [Suspect]
     Active Substance: ESOMEPRAZOLE MAGNESIUM
     Indication: GASTROOESOPHAGEAL REFLUX DISEASE
     Route: 048
     Dates: start: 201707

REACTIONS (13)
  - Mental disorder [Recovering/Resolving]
  - Fibromyalgia [Not Recovered/Not Resolved]
  - Nausea [Unknown]
  - Confusional state [Not Recovered/Not Resolved]
  - Intervertebral disc protrusion [Not Recovered/Not Resolved]
  - Dyspepsia [Not Recovered/Not Resolved]
  - Depression [Not Recovered/Not Resolved]
  - Aphasia [Recovering/Resolving]
  - Cervical spinal stenosis [Not Recovered/Not Resolved]
  - Abdominal discomfort [Unknown]
  - Vomiting [Unknown]
  - Product substitution issue [Unknown]
  - Gait inability [Recovering/Resolving]

NARRATIVE: CASE EVENT DATE: 2004
